FAERS Safety Report 8396165-X (Version None)
Quarter: 2012Q2

REPORT INFORMATION
  Report Type: 
  Country: None (occurrence: None)
  Receive Date: 20120530
  Receipt Date: 20120522
  Transmission Date: 20120825
  Serious: Yes (Hospitalization)
  Sender: FDA-Public Use
  Company Number: US-GLAXOSMITHKLINE-A0979214A

PATIENT
  Age: 73 Year

DRUGS (5)
  1. REVATIO [Concomitant]
  2. SPIRONOLACTONE [Concomitant]
  3. WARFARIN SODIUM [Concomitant]
  4. FLOLAN [Suspect]
     Indication: PRODUCT USED FOR UNKNOWN INDICATION
     Dosage: 26.9NGKM CONTINUOUS
     Route: 042
     Dates: start: 20070615
  5. DIGOXIN [Concomitant]

REACTIONS (1)
  - FLUID RETENTION [None]
